FAERS Safety Report 15135092 (Version 5)
Quarter: 2018Q3

REPORT INFORMATION
  Report Type: Report from Study
  Country: DE (occurrence: DE)
  Receive Date: 20180712
  Receipt Date: 20180801
  Transmission Date: 20181010
  Serious: Yes (Death, Congenital Anomaly, Other)
  Sender: FDA-Public Use
  Company Number: DE-PFIZER INC-2018280703

PATIENT

DRUGS (5)
  1. AMIODARONE HCL [Suspect]
     Active Substance: AMIODARONE HYDROCHLORIDE
     Dosage: UNK
     Route: 064
  2. NADOLOL. [Suspect]
     Active Substance: NADOLOL
     Dosage: UNK
     Route: 064
  3. CAPTOPRIL. [Suspect]
     Active Substance: CAPTOPRIL
     Indication: HYPERTENSION
     Dosage: 50 MG, UNK
     Route: 064
  4. DIGITOXIN [Suspect]
     Active Substance: DIGITOXIN
     Dosage: UNK
     Route: 064
  5. ACETAZOLAMIDE. [Suspect]
     Active Substance: ACETAZOLAMIDE
     Dosage: UNK
     Route: 064

REACTIONS (2)
  - Maternal exposure during pregnancy [Fatal]
  - Potter^s syndrome [Fatal]
